FAERS Safety Report 8992677 (Version 2)
Quarter: 2013Q1

REPORT INFORMATION
  Report Type: Report from Study
  Country: CA (occurrence: CA)
  Receive Date: 20130101
  Receipt Date: 20130125
  Transmission Date: 20140127
  Serious: Yes (Hospitalization)
  Sender: FDA-Public Use
  Company Number: CA-BRISTOL-MYERS SQUIBB COMPANY-17192477

PATIENT
  Age: 62 Year
  Sex: Male
  Weight: 88.6 kg

DRUGS (14)
  1. CETUXIMAB [Suspect]
     Indication: HEAD AND NECK CANCER
     Dosage: REG 1?CYC1 OF D1?INTERR 28NOV12,RESUMED ON 05DEC12?LAST DOSE PRIOR TO EVENT 21NOV12
     Route: 042
     Dates: start: 20121121
  2. CISPLATIN FOR INJ [Suspect]
     Indication: HEAD AND NECK CANCER
     Dosage: REG 1?D1?LAST DOSE PRIOR TO EVENT 21NOV12
     Route: 042
     Dates: start: 20121121
  3. 5-FLUOROURACIL [Suspect]
     Indication: HEAD AND NECK CANCER
     Dosage: REG 1?D1-4?LAST DOSE PRIOR TO EVENT:25NOV12
     Route: 042
     Dates: start: 20121121
  4. NASONEX [Concomitant]
     Indication: NASAL SEPTAL OPERATION
     Dates: start: 1998
  5. ZINC SULFATE [Concomitant]
     Indication: HAEMORRHOIDS
     Dates: start: 2003
  6. LORAZEPAM [Concomitant]
     Indication: ANXIETY
     Dates: start: 20120920
  7. LORAZEPAM [Concomitant]
     Indication: INSOMNIA
     Dates: start: 20120920
  8. COLACE [Concomitant]
     Indication: CONSTIPATION
     Dates: start: 2003
  9. STATEX [Concomitant]
     Indication: CANCER PAIN
     Dates: start: 2012
  10. NEXIUM [Concomitant]
     Indication: GASTRIC PH DECREASED
     Dates: start: 2002
  11. BETAMETHASONE [Concomitant]
     Indication: ECZEMA
     Dates: start: 2002
  12. HYDROCORTISONE [Concomitant]
     Indication: ERYTHEMA
     Dates: start: 20121119
  13. FLOVENT [Concomitant]
     Indication: ERYTHEMA
     Dates: start: 20121121
  14. DEXAMETHASONE [Concomitant]
     Indication: ECZEMA
     Dates: start: 20120830

REACTIONS (1)
  - Panic attack [Recovered/Resolved]
